FAERS Safety Report 7690951-7 (Version None)
Quarter: 2011Q3

REPORT INFORMATION
  Report Type: 
  Country: None (occurrence: None)
  Receive Date: 20110818
  Receipt Date: 20110815
  Transmission Date: 20111222
  Serious: Yes (Other)
  Sender: FDA-Public Use
  Company Number: EG-SANOFI-AVENTIS-2011SA052113

PATIENT
  Age: 50 Year
  Sex: Male

DRUGS (2)
  1. HUMULIN R [Concomitant]
     Indication: DIABETES MELLITUS
     Dosage: DOSE:40 UNIT(S)
     Route: 058
     Dates: start: 20100101
  2. LANTUS [Suspect]
     Dosage: DOSE:20 UNIT(S)
     Route: 058
     Dates: start: 20110730, end: 20110811

REACTIONS (2)
  - HYPERGLYCAEMIA [None]
  - LOSS OF CONSCIOUSNESS [None]
